FAERS Safety Report 21669312 (Version 4)
Quarter: 2022Q4

REPORT INFORMATION
  Report Type: Spontaneous
  Country: CN (occurrence: CN)
  Receive Date: 20221201
  Receipt Date: 20221228
  Transmission Date: 20230112
  Serious: Yes (Life-Threatening, Hospitalization)
  Sender: FDA-Public Use
  Company Number: CN-PFIZER INC-PV202200111522

PATIENT
  Age: 60 Year
  Sex: Male

DRUGS (5)
  1. DACOMITINIB [Interacting]
     Active Substance: DACOMITINIB
     Indication: Lung adenocarcinoma
     Dosage: 45 MG, 1X/DAY
     Dates: start: 20220224, end: 20220227
  2. METOPROLOL TARTRATE [Interacting]
     Active Substance: METOPROLOL TARTRATE
     Indication: Hypertension
     Dosage: 12.5 MG, 2X/DAY
     Dates: end: 20220301
  3. LEVAMLODIPINE MALEATE [Concomitant]
     Active Substance: LEVAMLODIPINE MALEATE
     Indication: Hypertension
     Dosage: 2.5 MG, 1X/DAY
  4. METFORMIN HYDROCHLORIDE [Concomitant]
     Active Substance: METFORMIN HYDROCHLORIDE
     Indication: Diabetes mellitus
     Dosage: 0.5 MG, 2X/DAY
  5. ACARBOSE [Concomitant]
     Active Substance: ACARBOSE
     Indication: Diabetes mellitus
     Dosage: 50 MG, 3X/DAY

REACTIONS (2)
  - Liver injury [Recovered/Resolved]
  - Drug interaction [Recovered/Resolved]
